FAERS Safety Report 21555969 (Version 1)
Quarter: 2022Q4

REPORT INFORMATION
  Report Type: Spontaneous
  Country: US (occurrence: US)
  Receive Date: 20221104
  Receipt Date: 20221104
  Transmission Date: 20230113
  Serious: Yes (Death, Other)
  Sender: FDA-Public Use
  Company Number: US-GSK-US2022158992

PATIENT

DRUGS (17)
  1. TRELEGY ELLIPTA [Suspect]
     Active Substance: FLUTICASONE FUROATE\UMECLIDINIUM BROMIDE\VILANTEROL TRIFENATATE
     Indication: Chronic obstructive pulmonary disease
     Dosage: UNK UNK, QD
  2. COUMADIN [Suspect]
     Active Substance: WARFARIN SODIUM
     Indication: Product used for unknown indication
     Dosage: UNK
  3. ALBUTEROL [Concomitant]
     Active Substance: ALBUTEROL
     Indication: Wheezing
     Dosage: UNK, AS REQUIRED
     Dates: start: 2012
  4. ATORVASTATIN [Concomitant]
     Active Substance: ATORVASTATIN
     Indication: Atrial fibrillation
     Dosage: 1 DF, QD, 20 MG
  5. AZITHROMYCIN DIHYDROCHLORIDE [Concomitant]
     Active Substance: AZITHROMYCIN DIHYDROCHLORIDE
     Indication: Therapy change
     Dosage: UNK, 3 X WEEKLY
  6. BASAGLAR [Concomitant]
     Active Substance: INSULIN GLARGINE
     Indication: Diabetes mellitus
     Dosage: 100 MG, QD
     Dates: start: 202205
  7. DILTIAZEM [Concomitant]
     Active Substance: DILTIAZEM
     Indication: Heart rate
     Dosage: 120 MG, QD, DAILY
     Dates: start: 2012
  8. LINAGLIPTIN [Concomitant]
     Active Substance: LINAGLIPTIN
     Indication: Diabetes mellitus
     Dosage: 5 MG, QD, DAILY
     Dates: start: 2016
  9. METOPROLOL [Concomitant]
     Active Substance: METOPROLOL
     Indication: Heart rate
     Dosage: 25 MG, QD, DAILY
     Dates: start: 2012
  10. MONTELUKAST [Concomitant]
     Active Substance: MONTELUKAST SODIUM
     Indication: Hypersensitivity
     Dosage: 10 MG, QD, DAILY
     Dates: start: 2012
  11. NORTRIPTYLINE [Concomitant]
     Active Substance: NORTRIPTYLINE
     Indication: Insomnia
     Dosage: 10 MG, BID, DAILY
  12. PANTOPRAZOLE [Concomitant]
     Active Substance: PANTOPRAZOLE
     Indication: Oesophageal haemorrhage
     Dosage: 40 MG, BID
  13. ONDANSETRON [Concomitant]
     Active Substance: ONDANSETRON
     Indication: Nausea
     Dosage: 4 MG, AS NEEDED
  14. QUETIAPINE [Concomitant]
     Active Substance: QUETIAPINE
     Indication: Hallucination
     Dosage: 25 MG, QD, DAILY
     Dates: start: 202205
  15. SILDENAFIL [Concomitant]
     Active Substance: SILDENAFIL
     Indication: Heart rate
     Dosage: 2 DF, TID, 20 MG
  16. TERIPARATIDE [Concomitant]
     Active Substance: TERIPARATIDE
     Indication: Product used for unknown indication
     Dosage: 620 MG, QD, DAILY
  17. TORSEMIDE [Concomitant]
     Active Substance: TORSEMIDE
     Indication: Heart rate
     Dosage: 20 MG, TID, DAILY

REACTIONS (3)
  - Brain stem haemorrhage [Fatal]
  - Cerebral haemorrhage [Fatal]
  - Fall [Fatal]
